FAERS Safety Report 4956876-2 (Version None)
Quarter: 2006Q1

REPORT INFORMATION
  Report Type: 
  Country: None (occurrence: None)
  Receive Date: 20060127
  Receipt Date: 20050707
  Transmission Date: 20060701
  Serious: Yes (Other)
  Sender: FDA-Public Use
  Company Number: 05-07-1162

PATIENT
  Age: 46 Year
  Sex: Male
  Weight: 54.4316 kg

DRUGS (2)
  1. CLOZAPINE [Suspect]
     Indication: SCHIZOAFFECTIVE DISORDER
     Dosage: 300MG QD, ORAL
     Route: 048
     Dates: start: 20030210, end: 20050706
  2. INTERFERON (INTERFERON) [Suspect]
     Indication: HEPATITIS C

REACTIONS (1)
  - GRANULOCYTOPENIA [None]
